FAERS Safety Report 21705257 (Version 1)
Quarter: 2022Q4

REPORT INFORMATION
  Report Type: Spontaneous
  Country: JP (occurrence: JP)
  Receive Date: 20221209
  Receipt Date: 20221209
  Transmission Date: 20230113
  Serious: Yes (Hospitalization)
  Sender: FDA-Public Use
  Company Number: JP-JNJFOC-20221210768

PATIENT
  Age: 21 Year
  Sex: Male
  Weight: 68.1 kg

DRUGS (2)
  1. SIRTURO [Suspect]
     Active Substance: BEDAQUILINE FUMARATE
     Indication: Product used for unknown indication
     Route: 048
  2. DELAMANID [Concomitant]
     Active Substance: DELAMANID
     Dosage: DOSE UNKNOWN
     Route: 048

REACTIONS (1)
  - Pyrexia [Unknown]
